FAERS Safety Report 25600166 (Version 2)
Quarter: 2025Q3

REPORT INFORMATION
  Report Type: Spontaneous
  Country: US (occurrence: US)
  Receive Date: 20250724
  Receipt Date: 20250808
  Transmission Date: 20251021
  Serious: Yes (Hospitalization)
  Sender: TEVA
  Company Number: US-TEVA-VS-3352152

PATIENT
  Age: 60 Year
  Sex: Female

DRUGS (6)
  1. HALOPERIDOL [Suspect]
     Active Substance: HALOPERIDOL
     Indication: Agitation
     Route: 065
  2. ZIPRASIDONE [Suspect]
     Active Substance: ZIPRASIDONE
     Indication: Bipolar disorder
     Route: 065
  3. ZIPRASIDONE [Suspect]
     Active Substance: ZIPRASIDONE
     Indication: Bipolar disorder
     Route: 065
  4. LITHIUM [Suspect]
     Active Substance: LITHIUM
     Indication: Bipolar disorder
     Route: 065
  5. DULOXETINE [Suspect]
     Active Substance: DULOXETINE
     Indication: Bipolar disorder
     Route: 065
  6. LORAZEPAM [Suspect]
     Active Substance: LORAZEPAM
     Indication: Agitation
     Route: 065

REACTIONS (4)
  - Neuroleptic malignant syndrome [Recovering/Resolving]
  - Acute kidney injury [Recovering/Resolving]
  - Dysphagia [Unknown]
  - Rhabdomyolysis [Recovering/Resolving]
